FAERS Safety Report 17381399 (Version 2)
Quarter: 2021Q1

REPORT INFORMATION
  Report Type: Spontaneous
  Country: US (occurrence: US)
  Receive Date: 20200206
  Receipt Date: 20210201
  Transmission Date: 20210419
  Serious: No
  Sender: FDA-Public Use
  Company Number: US-ABBVIE-19K-163-2789802-00

PATIENT
  Sex: Female

DRUGS (1)
  1. HUMIRA [Suspect]
     Active Substance: ADALIMUMAB
     Indication: PRODUCT USED FOR UNKNOWN INDICATION
     Route: 058

REACTIONS (9)
  - Stress [Unknown]
  - Rash pruritic [Unknown]
  - Skin disorder [Unknown]
  - Scar [Unknown]
  - Rash [Unknown]
  - Scratch [Unknown]
  - Nervousness [Unknown]
  - Dermatitis contact [Unknown]
  - Skin haemorrhage [Unknown]
